FAERS Safety Report 17159130 (Version 1)
Quarter: 2019Q4

REPORT INFORMATION
  Report Type: Report from Study
  Country: GB (occurrence: GB)
  Receive Date: 20191216
  Receipt Date: 20191216
  Transmission Date: 20200122
  Serious: Yes (Hospitalization)
  Sender: FDA-Public Use
  Company Number: GB-EMD SERONO-E2B_90073266

PATIENT
  Age: 69 Year
  Sex: Female
  Weight: 60 kg

DRUGS (9)
  1. AMLODIPINE [Concomitant]
     Active Substance: AMLODIPINE BESYLATE
     Indication: HYPERTENSION
     Dosage: 10 MG, 1X/DAY (OD)
     Route: 048
     Dates: start: 20170822
  2. LEVOTHYROXINE. [Concomitant]
     Active Substance: LEVOTHYROXINE
     Indication: HYPOTHYROIDISM
     Dosage: 75/100 MCG, 1X/DAY
     Route: 048
     Dates: start: 20171229
  3. LANTUS [Concomitant]
     Active Substance: INSULIN GLARGINE
     Indication: DIABETES MELLITUS
     Dosage: 34 IU, EVERY NIGHT (ON)
     Route: 058
     Dates: start: 20191127
  4. PARACETAMOL [Concomitant]
     Active Substance: ACETAMINOPHEN
     Indication: PAIN
     Dosage: 1000 MG, FOUR TIMES EACH DAY (QDS)
     Route: 048
     Dates: start: 20161201
  5. NOVORAPID [Concomitant]
     Active Substance: INSULIN ASPART
     Indication: DIABETES MELLITUS
     Dosage: 14/16/16 UNITS, 3X/DAY
     Route: 048
     Dates: start: 20191127
  6. INLYTA [Suspect]
     Active Substance: AXITINIB
     Indication: RENAL CELL CARCINOMA
     Dosage: 5 MG, TWICE SAILY CONTINUOUS
     Route: 048
     Dates: start: 20170519, end: 20191128
  7. LANSOPRAZOLE. [Concomitant]
     Active Substance: LANSOPRAZOLE
     Indication: PROPHYLAXIS
     Dosage: 30 MG, 1X/DAY (OD)
     Route: 048
     Dates: start: 20170602
  8. AVELUMAB [Suspect]
     Active Substance: AVELUMAB
     Indication: RENAL CELL CARCINOMA
     Route: 042
     Dates: start: 20170519, end: 20191101
  9. BUPRENORPHINE. [Concomitant]
     Active Substance: BUPRENORPHINE
     Indication: PAIN
     Dosage: 5 MCG/HR CONTINUOUS
     Route: 061
     Dates: start: 20191101

REACTIONS (1)
  - Hyperglycaemic hyperosmolar nonketotic syndrome [Unknown]

NARRATIVE: CASE EVENT DATE: 20191206
